FAERS Safety Report 9829988 (Version 1)
Quarter: 2014Q1

REPORT INFORMATION
  Report Type: Spontaneous
  Country: GB (occurrence: GB)
  Receive Date: 20140120
  Receipt Date: 20140120
  Transmission Date: 20141002
  Serious: Yes (Disabling)
  Sender: FDA-Public Use
  Company Number: GB-MYLANLABS-2014S1000442

PATIENT
  Age: 21 Year
  Sex: Male
  Weight: 68.03 kg

DRUGS (2)
  1. ISOTRETINOIN [Suspect]
     Indication: ACNE
     Route: 048
     Dates: start: 20121130
  2. ISOTRETINOIN [Suspect]
     Indication: ACNE
     Route: 048

REACTIONS (5)
  - Lip dry [Not Recovered/Not Resolved]
  - Erectile dysfunction [Not Recovered/Not Resolved]
  - Libido decreased [Not Recovered/Not Resolved]
  - Mood altered [Not Recovered/Not Resolved]
  - Sexual dysfunction [Not Recovered/Not Resolved]
